FAERS Safety Report 19332441 (Version 1)
Quarter: 2021Q2

REPORT INFORMATION
  Report Type: Spontaneous
  Country: NL (occurrence: NL)
  Receive Date: 20210529
  Receipt Date: 20210529
  Transmission Date: 20210717
  Serious: Yes (Other)
  Sender: FDA-Public Use
  Company Number: NL-AUROBINDO-AUR-APL-2019-081012

PATIENT
  Age: 70 Year
  Sex: Female

DRUGS (4)
  1. VALPROATE SODIUM. [Suspect]
     Active Substance: VALPROATE SODIUM
     Indication: EPILEPSY
     Dosage: 500 MILLIGRAM, TWO TIMES A DAY
     Route: 065
     Dates: start: 2008, end: 200810
  2. PREDNISONE. [Concomitant]
     Active Substance: PREDNISONE
     Indication: LUPUS NEPHRITIS
     Dosage: UNK
     Route: 048
     Dates: start: 200801
  3. CYCLOPHOSPHAMIDE. [Concomitant]
     Active Substance: CYCLOPHOSPHAMIDE
     Indication: LUPUS NEPHRITIS
     Dosage: UNK
     Route: 065
     Dates: start: 200801
  4. MYCOPHENOLATE [Interacting]
     Active Substance: MYCOPHENOLIC ACID
     Indication: NEUROPSYCHIATRIC LUPUS
     Dosage: UNK
     Route: 065
     Dates: start: 200808

REACTIONS (20)
  - Cognitive disorder [Recovered/Resolved]
  - Apraxia [Unknown]
  - Aphasia [Unknown]
  - Disorientation [Unknown]
  - Apathy [Unknown]
  - Parkinsonism [Recovered/Resolved]
  - Gait disturbance [Recovered/Resolved]
  - Agnosia [Unknown]
  - Postural reflex impairment [Unknown]
  - Neuropsychiatric lupus [Unknown]
  - Bradyphrenia [Unknown]
  - Muscle rigidity [Unknown]
  - Bedridden [Unknown]
  - Dementia [Recovered/Resolved]
  - Amnesia [Unknown]
  - Toxicity to various agents [Recovered/Resolved]
  - Perseveration [Unknown]
  - Tremor [Unknown]
  - Drug interaction [Recovered/Resolved]
  - Decreased interest [Unknown]
